FAERS Safety Report 7421460-8 (Version None)
Quarter: 2011Q2

REPORT INFORMATION
  Report Type: 
  Country: None (occurrence: None)
  Receive Date: 20110418
  Receipt Date: 20110412
  Transmission Date: 20111010
  Serious: Yes (Other)
  Sender: FDA-Public Use
  Company Number: FR-GENZYME-THYM-1002403

PATIENT

DRUGS (13)
  1. PLATELETS [Concomitant]
     Indication: TRANSFUSION
  2. THYMOGLOBULIN [Suspect]
     Indication: PROPHYLAXIS AGAINST TRANSPLANT REJECTION
     Dosage: 1 MG/KG, QD
     Route: 042
  3. VALGANCICLOVIR [Concomitant]
     Indication: ANTIVIRAL PROPHYLAXIS
  4. FRESH FROZEN PLASMA [Concomitant]
     Indication: TRANSFUSION
  5. MYCOPHENOLATE MOFETIL [Concomitant]
     Indication: PROPHYLAXIS AGAINST TRANSPLANT REJECTION
     Dosage: 2 G/DAY, UNK
  6. TACROLIMUS [Concomitant]
     Indication: PROPHYLAXIS AGAINST TRANSPLANT REJECTION
     Dosage: 10 NG/ML, UNK
     Route: 048
  7. MYCOPHENOLATE MOFETIL [Concomitant]
     Dosage: 1 G, QD
     Dates: start: 20070101
  8. THYMOGLOBULIN [Suspect]
     Indication: TRANSPLANT REJECTION
  9. PREDNISONE [Suspect]
  10. VANCOMYCIN HCL [Concomitant]
     Indication: INFECTION PROPHYLAXIS
  11. CLAFORAN [Concomitant]
     Indication: INFECTION PROPHYLAXIS
  12. TRIMETHOPRIM + SULFAMETHOXAZOLE [Concomitant]
     Indication: INFECTION PROPHYLAXIS
  13. RED BLOOD CELLS, CONCENTRATED [Concomitant]
     Indication: TRANSFUSION

REACTIONS (2)
  - TRANSPLANT REJECTION [None]
  - CYTOMEGALOVIRUS INFECTION [None]
